FAERS Safety Report 5792994-7 (Version None)
Quarter: 2008Q2

REPORT INFORMATION
  Report Type: 
  Country: None (occurrence: None)
  Receive Date: 20080627
  Receipt Date: 20080617
  Transmission Date: 20081010
  Serious: Yes (Other)
  Sender: FDA-Public Use
  Company Number: PHNU2008DE01667

PATIENT
  Sex: Female

DRUGS (4)
  1. EXELON [Suspect]
     Indication: DEMENTIA
     Dosage: 4.6 MG/24 HR PATCH
     Route: 062
     Dates: start: 20080422, end: 20080426
  2. EXELON [Suspect]
     Dosage: TWO 4.6 MG PATCHES AT ONCE
     Route: 062
     Dates: start: 20080426, end: 20080427
  3. EXELON [Suspect]
     Dosage: 4.6 MG/24 HR PATCH
     Route: 062
     Dates: start: 20080427, end: 20080429
  4. EXELON [Suspect]
     Dosage: 2.3 MG/24 HR PATCH
     Route: 062
     Dates: start: 20080429

REACTIONS (10)
  - APHASIA [None]
  - BODY TEMPERATURE DECREASED [None]
  - CONFUSIONAL STATE [None]
  - DEHYDRATION [None]
  - DISORIENTATION [None]
  - DRUG ADMINISTRATION ERROR [None]
  - FALL [None]
  - HYPOKINESIA [None]
  - JOINT STIFFNESS [None]
  - TREMOR [None]
